FAERS Safety Report 6373275-X (Version None)
Quarter: 2009Q3

REPORT INFORMATION
  Report Type: 
  Country: None (occurrence: None)
  Receive Date: 20090924
  Receipt Date: 20090908
  Transmission Date: 20100115
  Serious: Yes (Hospitalization)
  Sender: FDA-Public Use
  Company Number: JRFBEL1999001196

PATIENT
  Age: 39 Year
  Sex: Female

DRUGS (3)
  1. LOPERAMIDE HYDROCHLORIDE [Suspect]
     Indication: DIARRHOEA
     Route: 048
  2. ST JOHN'S WORT [Interacting]
     Indication: DRUG USE FOR UNKNOWN INDICATION
     Route: 048
  3. VALERIAN ROOT [Suspect]
     Indication: DRUG USE FOR UNKNOWN INDICATION
     Route: 048

REACTIONS (3)
  - DELIRIUM [None]
  - DRUG INTERACTION [None]
  - MYDRIASIS [None]
